FAERS Safety Report 15344715 (Version 1)
Quarter: 2018Q3

REPORT INFORMATION
  Report Type: Spontaneous
  Country: JP (occurrence: JP)
  Receive Date: 20180903
  Receipt Date: 20180903
  Transmission Date: 20181010
  Serious: Yes (Other)
  Sender: FDA-Public Use
  Company Number: PHHY2018JP084013

PATIENT
  Age: 71 Year
  Sex: Male

DRUGS (3)
  1. TACROLIMUS. [Suspect]
     Active Substance: TACROLIMUS
     Indication: MYOPATHY
     Dosage: 3 MG, QD
     Route: 065
  2. METHYLPREDNISOLONE. [Concomitant]
     Active Substance: METHYLPREDNISOLONE
     Indication: MYOPATHY
     Dosage: 1 G, QD
     Route: 065
  3. PREDNISOLONE. [Concomitant]
     Active Substance: PREDNISOLONE
     Indication: MYOPATHY
     Dosage: 1 MG/KG, QD
     Route: 048

REACTIONS (7)
  - Product use in unapproved indication [Unknown]
  - Pyrexia [Unknown]
  - Diarrhoea [Unknown]
  - Abdominal pain [Unknown]
  - Diffuse large B-cell lymphoma [Recovered/Resolved]
  - Thrombocytopenia [Unknown]
  - Myopathy [Unknown]
